FAERS Safety Report 10958448 (Version 1)
Quarter: 2015Q1

REPORT INFORMATION
  Report Type: Report from Study
  Country: US (occurrence: US)
  Receive Date: 20150326
  Receipt Date: 20150326
  Transmission Date: 20150721
  Serious: Yes (Hospitalization)
  Sender: FDA-Public Use
  Company Number: US-GILEAD-2015-0144748

PATIENT
  Age: 62 Year
  Sex: Male

DRUGS (21)
  1. PROTONIX [Concomitant]
     Active Substance: PANTOPRAZOLE SODIUM
  2. ADVAIR HFA [Concomitant]
     Active Substance: FLUTICASONE PROPIONATE\SALMETEROL XINAFOATE
  3. ELOCON [Concomitant]
     Active Substance: MOMETASONE FUROATE
  4. COLCRYS [Concomitant]
     Active Substance: COLCHICINE
  5. TRAMADOL [Concomitant]
     Active Substance: TRAMADOL
  6. METOPROLOL [Concomitant]
     Active Substance: METOPROLOL
  7. PREDNISONE. [Concomitant]
     Active Substance: PREDNISONE
  8. DUONEB [Concomitant]
     Active Substance: ALBUTEROL SULFATE\IPRATROPIUM BROMIDE
  9. COUMADIN [Concomitant]
     Active Substance: WARFARIN SODIUM
  10. NASONEX [Concomitant]
     Active Substance: MOMETASONE FUROATE
  11. SINEMET [Concomitant]
     Active Substance: CARBIDOPA\LEVODOPA
  12. LASIX [Concomitant]
     Active Substance: FUROSEMIDE
  13. KETOCONAZOLE. [Concomitant]
     Active Substance: KETOCONAZOLE
  14. ASMANEX [Concomitant]
     Active Substance: MOMETASONE FUROATE
  15. KLOR-CON [Concomitant]
     Active Substance: POTASSIUM CHLORIDE
  16. REQUIP [Concomitant]
     Active Substance: ROPINIROLE HYDROCHLORIDE
  17. PROAIR HFA [Concomitant]
     Active Substance: ALBUTEROL SULFATE
  18. BUDESONIDE. [Concomitant]
     Active Substance: BUDESONIDE
  19. AMBRISENTAN [Suspect]
     Active Substance: AMBRISENTAN
     Indication: PULMONARY HYPERTENSION
     Dosage: 10 MG, QD
     Route: 065
     Dates: start: 20130710
  20. ATORVASTATIN [Concomitant]
     Active Substance: ATORVASTATIN
  21. ASPIRIN                            /00002701/ [Concomitant]
     Active Substance: ASPIRIN

REACTIONS (2)
  - Movement disorder [Not Recovered/Not Resolved]
  - Speech disorder [Not Recovered/Not Resolved]

NARRATIVE: CASE EVENT DATE: 20150309
